FAERS Safety Report 9416761 (Version 2)
Quarter: 2013Q3

REPORT INFORMATION
  Report Type: Spontaneous
  Country: US (occurrence: US)
  Receive Date: 20130724
  Receipt Date: 20130816
  Transmission Date: 20140515
  Serious: No
  Sender: FDA-Public Use
  Company Number: US-009507513-1307USA005576

PATIENT
  Age: 56 Year
  Sex: Male
  Weight: 104.31 kg

DRUGS (11)
  1. PEGINTRON [Suspect]
     Dosage: 160 MICROGRAM, ONCE PER WEEK AS DIRECTED
     Route: 058
  2. REBETOL [Suspect]
     Route: 048
  3. HUMALOG [Concomitant]
     Route: 058
  4. SERTRALINE HYDROCHLORIDE [Concomitant]
     Route: 048
  5. AMLODIPINE [Concomitant]
     Route: 048
  6. LANTUS [Concomitant]
     Route: 058
  7. GABAPENTIN [Concomitant]
     Route: 048
  8. PRINIVIL [Concomitant]
     Route: 048
  9. HYDROCHLOROT [Concomitant]
     Route: 048
  10. METOPROLOL [Concomitant]
     Route: 048
  11. TEMAZEPAM [Concomitant]
     Route: 048

REACTIONS (3)
  - Influenza like illness [Unknown]
  - Rash [Unknown]
  - Fatigue [Unknown]
